FAERS Safety Report 6599674-9 (Version None)
Quarter: 2010Q1

REPORT INFORMATION
  Report Type: 
  Country: None (occurrence: None)
  Receive Date: 20100217
  Receipt Date: 20100203
  Transmission Date: 20100710
  Serious: Yes (Hospitalization)
  Sender: FDA-Public Use
  Company Number: 232898J08USA

PATIENT
  Age: 63 Year
  Sex: Female
  Weight: 55 kg

DRUGS (14)
  1. REBIF [Suspect]
     Indication: MULTIPLE SCLEROSIS
     Dosage: SEE IMAGE
     Route: 058
     Dates: start: 20030101, end: 20071201
  2. REBIF [Suspect]
     Indication: MULTIPLE SCLEROSIS
     Dosage: SEE IMAGE
     Route: 058
     Dates: start: 20071201, end: 20080101
  3. REBIF [Suspect]
     Indication: MULTIPLE SCLEROSIS
     Dosage: SEE IMAGE
     Route: 058
     Dates: start: 20080101, end: 20080324
  4. REBIF [Suspect]
     Indication: MULTIPLE SCLEROSIS
     Dosage: SEE IMAGE
     Route: 058
     Dates: start: 20080724, end: 20090403
  5. BACLOFEN [Concomitant]
  6. NEURONTIN [Concomitant]
  7. VICODIN [Concomitant]
  8. ADVIL LIQUI-GELS [Concomitant]
  9. OBETROL [Concomitant]
  10. LEXAPRO [Concomitant]
  11. CLONAZEPAM [Concomitant]
  12. LYRICA [Concomitant]
  13. BUPROPION HCL [Concomitant]
  14. ENOXAPARIN SODIUM [Concomitant]

REACTIONS (14)
  - DELIRIUM [None]
  - DIALYSIS [None]
  - FALL [None]
  - FEMUR FRACTURE [None]
  - FIBULA FRACTURE [None]
  - GAIT DISTURBANCE [None]
  - HALLUCINATION [None]
  - INCOHERENT [None]
  - PARANOIA [None]
  - PATELLA FRACTURE [None]
  - RENAL FAILURE [None]
  - RHABDOMYOLYSIS [None]
  - SPINAL COLUMN STENOSIS [None]
  - TIBIA FRACTURE [None]
